FAERS Safety Report 9688010 (Version 3)
Quarter: 2014Q1

REPORT INFORMATION
  Report Type: Report from Study
  Country: ES (occurrence: ES)
  Receive Date: 20131114
  Receipt Date: 20140117
  Transmission Date: 20141002
  Serious: Yes (Other)
  Sender: FDA-Public Use
  Company Number: ES-ASTELLAS-2013EU009233

PATIENT
  Age: 63 Year
  Sex: Female

DRUGS (16)
  1. PROGRAF [Suspect]
     Indication: IMMUNOSUPPRESSION
     Dosage: 6 MG, UNKNOWN/D
     Route: 065
  2. PROGRAF [Suspect]
     Dosage: UNK
     Route: 065
  3. ADVAGRAF [Suspect]
     Indication: IMMUNOSUPPRESSION
     Dosage: 5.5 MG, UID/QD
     Route: 065
  4. ADVAGRAF [Suspect]
     Dosage: 6 MG, UID/QD
     Route: 065
  5. ADVAGRAF [Suspect]
     Dosage: 8 MG, UID/QD
     Route: 065
  6. ADVAGRAF [Suspect]
     Dosage: 10 MG, UID/QD
     Route: 065
  7. ADVAGRAF [Suspect]
     Dosage: 8 MG, UID/QD
     Route: 065
  8. ADVAGRAF [Suspect]
     Dosage: 6 MG, UID/QD
     Route: 065
  9. ADVAGRAF [Suspect]
     Dosage: 5 MG, UID/QD
     Route: 065
  10. ADVAGRAF [Suspect]
     Dosage: 4 MG, UID/QD
     Route: 065
  11. ADVAGRAF [Suspect]
     Dosage: 3 MG, UID/QD
     Route: 065
  12. ADVAGRAF [Suspect]
     Dosage: 2 MG, UID/QD
     Route: 065
  13. ADVAGRAF [Suspect]
     Dosage: 4 MG, UID/QD
     Route: 065
  14. MYCOPHENOLATE MOFETIL [Suspect]
     Indication: IMMUNOSUPPRESSION
     Dosage: UNK
     Route: 065
  15. CORTICOSTEROID NOS [Suspect]
     Indication: IMMUNOSUPPRESSION
     Dosage: UNK
     Route: 065
  16. BASILIXIMAB [Concomitant]
     Indication: IMMUNOSUPPRESSION
     Dosage: 20 MG, UNKNOWN/D
     Route: 065

REACTIONS (3)
  - Transplant rejection [Not Recovered/Not Resolved]
  - Renal tubular necrosis [Unknown]
  - Graft loss [Not Recovered/Not Resolved]
